FAERS Safety Report 20190040 (Version 4)
Quarter: 2022Q2

REPORT INFORMATION
  Report Type: Report from Study
  Country: US (occurrence: None)
  Receive Date: 20211215
  Receipt Date: 20220411
  Transmission Date: 20220721
  Serious: Yes (Hospitalization, Other)
  Sender: FDA-Public Use
  Company Number: US-Merck Healthcare KGaA-9285652

PATIENT
  Age: 67 Year
  Sex: Male
  Weight: 69 kg

DRUGS (5)
  1. MAVENCLAD [Suspect]
     Active Substance: CLADRIBINE
     Indication: Multiple sclerosis
     Dosage: YEAR ONE MONTH ONE THERAPY
     Route: 048
     Dates: start: 20211112, end: 20211116
  2. MAVENCLAD [Suspect]
     Active Substance: CLADRIBINE
     Dosage: YEAR ONE MONTH TWO THERAPY
     Route: 048
     Dates: start: 20220329, end: 20220402
  3. OXYBUTYNIN [Suspect]
     Active Substance: OXYBUTYNIN
     Indication: Product used for unknown indication
  4. BACLOFEN [Suspect]
     Active Substance: BACLOFEN
     Indication: Product used for unknown indication
  5. TIZANIDINE [Suspect]
     Active Substance: TIZANIDINE
     Indication: Product used for unknown indication

REACTIONS (7)
  - Cerebrovascular accident [Unknown]
  - Unresponsive to stimuli [Recovering/Resolving]
  - Lethargy [Unknown]
  - Delusion [Unknown]
  - Drug interaction [Unknown]
  - Withdrawal syndrome [Unknown]
  - Overdose [Unknown]

NARRATIVE: CASE EVENT DATE: 20210101
